FAERS Safety Report 9697067 (Version 2)
Quarter: 2014Q1

REPORT INFORMATION
  Report Type: Spontaneous
  Country: US (occurrence: US)
  Receive Date: 20131120
  Receipt Date: 20140123
  Transmission Date: 20141002
  Serious: Yes (Other)
  Sender: FDA-Public Use
  Company Number: US-009507513-1311USA004206

PATIENT
  Age: 62 Year
  Sex: Female

DRUGS (5)
  1. COZAAR [Suspect]
     Indication: HYPERTENSION
     Dosage: 1 DF, QD
     Route: 048
     Dates: start: 2008
  2. KEPPRA [Concomitant]
  3. SYNTHROID [Concomitant]
  4. DILANTIN [Concomitant]
  5. DIAZEPAM [Concomitant]
     Route: 048

REACTIONS (3)
  - Loss of consciousness [Unknown]
  - Dysgeusia [Recovered/Resolved]
  - Product odour abnormal [Unknown]
